FAERS Safety Report 17264397 (Version 1)
Quarter: 2020Q1

REPORT INFORMATION
  Report Type: Spontaneous
  Country: US (occurrence: US)
  Receive Date: 20200113
  Receipt Date: 20200113
  Transmission Date: 20200409
  Serious: Yes (Death, Hospitalization)
  Sender: FDA-Public Use
  Company Number: US-BAYER-2020-003278

PATIENT
  Age: 22 Year
  Sex: Male

DRUGS (4)
  1. ACETAMINOPHEN;DIPHENHYDRAMINE HYDROCHLORIDE [Suspect]
     Active Substance: ACETAMINOPHEN\DIPHENHYDRAMINE HYDROCHLORIDE
  2. ALCOHOL. [Suspect]
     Active Substance: ALCOHOL
  3. ACETYLSALICYLIC ACID [Suspect]
     Active Substance: ASPIRIN
  4. IBUPROFEN. [Suspect]
     Active Substance: IBUPROFEN

REACTIONS (1)
  - Toxicity to various agents [Fatal]
